FAERS Safety Report 5633481-6 (Version None)
Quarter: 2008Q1

REPORT INFORMATION
  Report Type: 
  Country: None (occurrence: None)
  Receive Date: 20080221
  Receipt Date: 20080211
  Transmission Date: 20080703
  Serious: Yes (Hospitalization, Other)
  Sender: FDA-Public Use
  Company Number: US-PFIZER INC-2007101880

PATIENT
  Sex: Male
  Weight: 91.2 kg

DRUGS (4)
  1. BEXTRA [Suspect]
     Indication: NECK PAIN
     Route: 048
  2. BEXTRA [Suspect]
     Indication: BACK PAIN
  3. CELEBREX [Suspect]
     Indication: NECK PAIN
  4. CELEBREX [Suspect]
     Indication: BACK PAIN

REACTIONS (1)
  - MYOCARDIAL INFARCTION [None]
